FAERS Safety Report 7366637-5 (Version None)
Quarter: 2011Q1

REPORT INFORMATION
  Report Type: 
  Country: None (occurrence: None)
  Receive Date: 20110322
  Receipt Date: 20110315
  Transmission Date: 20110831
  Serious: Yes (Hospitalization)
  Sender: FDA-Public Use
  Company Number: US-PURDUE-USA-2011-0065430

PATIENT
  Sex: Female

DRUGS (2)
  1. OXYCONTIN [Suspect]
     Indication: INTERVERTEBRAL DISC DISPLACEMENT
     Dosage: 160 MG, Q12H
  2. OXYCONTIN [Suspect]
     Indication: OSTEOARTHRITIS

REACTIONS (1)
  - CELLULITIS [None]
